FAERS Safety Report 5406306-1 (Version None)
Quarter: 2007Q3

REPORT INFORMATION
  Report Type: 
  Country: None (occurrence: None)
  Receive Date: 20070806
  Receipt Date: 20070727
  Transmission Date: 20080115
  Serious: Yes (Hospitalization)
  Sender: FDA-Public Use
  Company Number: JP-BRISTOL-MYERS SQUIBB COMPANY-13864970

PATIENT
  Age: 56 Year
  Sex: Female

DRUGS (1)
  1. TRAZODONE HCL [Suspect]
     Indication: DEPRESSION
     Route: 048

REACTIONS (4)
  - DIABETIC NEUROPATHY [None]
  - PERITONITIS [None]
  - RENAL FAILURE [None]
  - SEROTONIN SYNDROME [None]
